FAERS Safety Report 13241953 (Version 1)
Quarter: 2017Q1

REPORT INFORMATION
  Report Type: Spontaneous
  Country: US (occurrence: US)
  Receive Date: 20170216
  Receipt Date: 20170216
  Transmission Date: 20170428
  Serious: No
  Sender: FDA-Public Use
  Company Number: US-RELYPSA-RLY2016004719

PATIENT
  Age: 80 Year
  Sex: Female

DRUGS (9)
  1. KIONEX [Concomitant]
     Active Substance: SODIUM POLYSTYRENE SULFONATE
  2. MUPIROCIN. [Concomitant]
     Active Substance: MUPIROCIN
  3. ATORVASTATIN [Concomitant]
     Active Substance: ATORVASTATIN
  4. LOTEMAX [Concomitant]
     Active Substance: LOTEPREDNOL ETABONATE
  5. VELTASSA [Suspect]
     Active Substance: PATIROMER
     Indication: HYPERKALAEMIA
     Dosage: 8.4 G, QD
     Route: 048
     Dates: start: 20161216
  6. SODIUM BICARBONATE. [Concomitant]
     Active Substance: SODIUM BICARBONATE
  7. LEVOTHYROXIN [Concomitant]
     Active Substance: LEVOTHYROXINE
  8. SMZ-TMP [Concomitant]
     Active Substance: SULFAMETHOXAZOLE\TRIMETHOPRIM
  9. ALPRAZOLAM. [Concomitant]
     Active Substance: ALPRAZOLAM

REACTIONS (1)
  - Adverse event [Unknown]

NARRATIVE: CASE EVENT DATE: 201612
